FAERS Safety Report 18066302 (Version 1)
Quarter: 2020Q3

REPORT INFORMATION
  Report Type: Spontaneous
  Country: AR (occurrence: AR)
  Receive Date: 20200724
  Receipt Date: 20200724
  Transmission Date: 20201103
  Serious: Yes (Other)
  Sender: FDA-Public Use
  Company Number: AR-PFIZER INC-2020280434

PATIENT
  Age: 38 Year
  Sex: Male

DRUGS (4)
  1. LAMOTRIGINA [Concomitant]
     Active Substance: LAMOTRIGINE
     Dosage: 100 UNK
  2. CLONAZEPAM. [Concomitant]
     Active Substance: CLONAZEPAM
     Dosage: 1 MG
  3. DESVENLAFAXINE. [Suspect]
     Active Substance: DESVENLAFAXINE
     Indication: MAJOR DEPRESSION
     Dosage: 100 MG
     Dates: start: 2013
  4. DESVENLAFAXINE. [Suspect]
     Active Substance: DESVENLAFAXINE
     Dosage: 50 MG

REACTIONS (11)
  - Musculoskeletal stiffness [Unknown]
  - Pain [Unknown]
  - Headache [Unknown]
  - Cervicobrachial syndrome [Unknown]
  - Neuralgia [Unknown]
  - Vision blurred [Unknown]
  - Muscle contracture [Unknown]
  - Drug intolerance [Unknown]
  - Dizziness [Unknown]
  - Lumbar hernia [Unknown]
  - Suicidal ideation [Unknown]
